FAERS Safety Report 5269236-4 (Version None)
Quarter: 2007Q1

REPORT INFORMATION
  Report Type: 
  Country: None (occurrence: None)
  Receive Date: 20070319
  Receipt Date: 20070309
  Transmission Date: 20070707
  Serious: Yes (Hospitalization)
  Sender: FDA-Public Use
  Company Number: FR-ABBOTT-07P-056-0361512-00

PATIENT
  Age: 73 Year
  Sex: Male

DRUGS (16)
  1. MONOZECLAR [Suspect]
     Indication: BRONCHITIS
     Route: 048
     Dates: start: 20061205, end: 20061214
  2. MONOZECLAR [Suspect]
     Indication: SUPERINFECTION
  3. CEFTRIAXONE [Suspect]
     Indication: DRUG USE FOR UNKNOWN INDICATION
     Dates: start: 20061205, end: 20061209
  4. PRAVASTATIN [Concomitant]
     Indication: DRUG USE FOR UNKNOWN INDICATION
     Route: 048
  5. RAMIPRIL [Concomitant]
     Indication: DRUG USE FOR UNKNOWN INDICATION
     Dosage: 1.25 X 2 PER DAY
     Route: 048
  6. CLOPIDOGREL [Concomitant]
     Indication: DRUG USE FOR UNKNOWN INDICATION
     Route: 048
  7. FUROSEMIDE [Concomitant]
     Indication: DRUG USE FOR UNKNOWN INDICATION
     Dosage: 40X2 PER DAY
     Route: 048
  8. REPAGLINIDE [Concomitant]
     Indication: DRUG USE FOR UNKNOWN INDICATION
     Dosage: 0.5X3 PER DAY
     Route: 048
  9. FENSPIRIDE [Concomitant]
     Indication: DRUG USE FOR UNKNOWN INDICATION
     Dosage: 80X3 PER DAY
     Route: 048
  10. FLUTICASONE, SALMETEROL [Concomitant]
     Indication: DRUG USE FOR UNKNOWN INDICATION
  11. ALFUZOCINE [Concomitant]
     Indication: DRUG USE FOR UNKNOWN INDICATION
     Dosage: 10 X 1
     Route: 048
  12. LEVOFLOXACIN [Concomitant]
     Indication: BRONCHITIS
     Dosage: 500 X 1
     Dates: start: 20061007, end: 20061017
  13. LEVOFLOXACIN [Concomitant]
     Indication: SUPERINFECTION
  14. TELITHROMYCINE [Concomitant]
     Indication: DRUG USE FOR UNKNOWN INDICATION
     Dosage: 2 PER DAY
     Route: 048
     Dates: start: 20061013, end: 20061017
  15. ACETYLCYSTEINE [Concomitant]
     Indication: DRUG USE FOR UNKNOWN INDICATION
     Dosage: 3 PER DAY
     Dates: start: 20061013
  16. PYRIDOXINE HCL [Concomitant]
     Indication: BRONCHITIS
     Route: 048
     Dates: start: 20061013

REACTIONS (3)
  - HEPATITIS CHOLESTATIC [None]
  - JAUNDICE [None]
  - RENAL FAILURE [None]
